FAERS Safety Report 17553825 (Version 2)
Quarter: 2020Q1

REPORT INFORMATION
  Report Type: Spontaneous
  Country: BR (occurrence: BR)
  Receive Date: 20200318
  Receipt Date: 20200331
  Transmission Date: 20200409
  Serious: Yes (Other)
  Sender: FDA-Public Use
  Company Number: BR-SA-2020SA061658

PATIENT
  Age: 34 Year
  Sex: Female
  Weight: 84 kg

DRUGS (4)
  1. REUQUINOL [Concomitant]
     Active Substance: HYDROXYCHLOROQUINE SULFATE
     Dosage: 1 DF, HS (1 PILL BY NIGHT)
     Route: 048
     Dates: start: 2014
  2. ACETYLSALICYLIC ACID [Suspect]
     Active Substance: ASPIRIN
     Indication: HYPERCOAGULATION
     Dosage: UNK UNK, HS (1 COMPRESSED THE NIGHT)
     Route: 048
     Dates: start: 2014
  3. CLEXANE [Suspect]
     Active Substance: ENOXAPARIN SODIUM
     Indication: HYPERCOAGULATION
     Dosage: 80 MG IN THE MORNING 2 SYRINGES
     Route: 058
     Dates: start: 2015
  4. CLEXANE [Suspect]
     Active Substance: ENOXAPARIN SODIUM
     Dosage: 60 MG
     Route: 058
     Dates: start: 2015

REACTIONS (2)
  - Exposure during pregnancy [Unknown]
  - Foetal death [Unknown]

NARRATIVE: CASE EVENT DATE: 20200103
